FAERS Safety Report 13354690 (Version 3)
Quarter: 2017Q3

REPORT INFORMATION
  Report Type: Spontaneous
  Country: FR (occurrence: FR)
  Receive Date: 20170321
  Receipt Date: 20170821
  Transmission Date: 20171127
  Serious: Yes (Other)
  Sender: FDA-Public Use
  Company Number: FR-GLAXOSMITHKLINE-FR2017GSK038371

PATIENT
  Age: 52 Year
  Sex: Male
  Weight: 60 kg

DRUGS (5)
  1. AOTAL [Concomitant]
     Active Substance: ACAMPROSATE CALCIUM
     Dosage: UNK
     Dates: start: 20170213
  2. PARACETAMOL AND CODEINE PHOSPHATE [Concomitant]
     Active Substance: ACETAMINOPHEN\CODEINE PHOSPHATE
  3. NICOPATCH [Suspect]
     Active Substance: NICOTINE
     Indication: SMOKING CESSATION THERAPY
     Dosage: 14 MG, 1D
     Route: 062
     Dates: start: 20170213, end: 20170214
  4. PYRIDOXINE [Concomitant]
     Active Substance: PYRIDOXINE
     Dosage: 250 MG, UNK
     Dates: start: 20170213
  5. BEVITINE [Concomitant]
     Active Substance: THIAMINE
     Dosage: 250 MG, UNK
     Dates: start: 20170213

REACTIONS (3)
  - Dermatitis contact [Recovered/Resolved with Sequelae]
  - Neurodermatitis [Recovered/Resolved with Sequelae]
  - Application site erythema [Recovered/Resolved with Sequelae]

NARRATIVE: CASE EVENT DATE: 20170213
